FAERS Safety Report 6968845-1 (Version None)
Quarter: 2010Q3

REPORT INFORMATION
  Report Type: 
  Country: None (occurrence: None)
  Receive Date: 20100903
  Receipt Date: 20100903
  Transmission Date: 20110219
  Serious: Yes (Hospitalization)
  Sender: FDA-Public Use
  Company Number: None

PATIENT
  Sex: Female
  Weight: 58.9 kg

DRUGS (14)
  1. RIFAMPIN [Suspect]
     Indication: MYCOBACTERIUM AVIUM COMPLEX INFECTION
     Dosage: RIFAMPIN 300MG 3X WEEKLY ORAL
     Route: 048
     Dates: start: 20080201, end: 20080715
  2. RIFAMPIN [Suspect]
     Indication: MYCOBACTERIUM AVIUM COMPLEX INFECTION
     Dosage: RIFAMPIN 300MG 3X WEEKLY ORAL
     Route: 048
     Dates: start: 20090515, end: 20100623
  3. ETHAMBUTOL HYDROCHLORIDE [Suspect]
     Indication: MYCOBACTERIUM AVIUM COMPLEX INFECTION
     Dosage: ETHAMBUTOL 400MG, 3X WEEKLY ORAL
     Route: 048
     Dates: start: 20080201, end: 20080715
  4. ETHAMBUTOL HYDROCHLORIDE [Suspect]
     Indication: MYCOBACTERIUM AVIUM COMPLEX INFECTION
     Dosage: ETHAMBUTOL 400MG, 3X WEEKLY ORAL
     Route: 048
     Dates: start: 20090515, end: 20100623
  5. AZITHROMYCIN [Suspect]
     Dosage: AZITHROMYCIN250MG
  6. ASPIRIN [Concomitant]
  7. LEVOTHYROXINE SODIUM [Concomitant]
  8. GINKGO BILOBO [Concomitant]
  9. MUCINEX [Concomitant]
  10. OXYTROL [Concomitant]
  11. NEXIUM [Concomitant]
  12. OXYCODONE HCL [Concomitant]
  13. FOLIC ACID [Concomitant]
  14. PROBIOTIC [Concomitant]

REACTIONS (11)
  - ANAEMIA HAEMOLYTIC AUTOIMMUNE [None]
  - ARTHRALGIA [None]
  - CHRONIC OBSTRUCTIVE PULMONARY DISEASE [None]
  - CONFUSIONAL STATE [None]
  - DIARRHOEA [None]
  - DYSKINESIA [None]
  - HEADACHE [None]
  - NAUSEA [None]
  - PAIN [None]
  - VOMITING [None]
  - WHITE BLOOD CELL COUNT INCREASED [None]
